FAERS Safety Report 6704118-X (Version None)
Quarter: 2010Q2

REPORT INFORMATION
  Report Type: 
  Country: None (occurrence: None)
  Receive Date: 20100423
  Receipt Date: 20100218
  Transmission Date: 20101027
  Serious: No
  Sender: FDA-Public Use
  Company Number: ALL1-2010-00934

PATIENT
  Age: 7 Year
  Sex: Male
  Weight: 42.2 kg

DRUGS (1)
  1. VYVANSE [Suspect]
     Indication: ATTENTION DEFICIT/HYPERACTIVITY DISORDER
     Dosage: 30 MG, 1X/DAY:QD, ORAL
     Route: 048
     Dates: start: 20100218

REACTIONS (5)
  - ABDOMINAL PAIN UPPER [None]
  - DECREASED APPETITE [None]
  - EYE PAIN [None]
  - HEADACHE [None]
  - VOMITING [None]
